FAERS Safety Report 25619631 (Version 1)
Quarter: 2025Q3

REPORT INFORMATION
  Report Type: Spontaneous
  Country: US (occurrence: US)
  Receive Date: 20250729
  Receipt Date: 20250729
  Transmission Date: 20251021
  Serious: No
  Sender: SANDOZ
  Company Number: US-SANDOZ-SDZ2025US051986

PATIENT
  Age: 62 Year
  Sex: Female

DRUGS (1)
  1. ESTRADIOL [Suspect]
     Active Substance: ESTRADIOL
     Indication: Product used for unknown indication
     Route: 062

REACTIONS (4)
  - Incorrect dose administered [Unknown]
  - Product adhesion issue [Unknown]
  - Product use complaint [Unknown]
  - Device defective [Unknown]

NARRATIVE: CASE EVENT DATE: 20250714
